FAERS Safety Report 9951189 (Version 2)
Quarter: 2014Q2

REPORT INFORMATION
  Report Type: Spontaneous
  Country: US (occurrence: US)
  Receive Date: 20140304
  Receipt Date: 20140414
  Transmission Date: 20141212
  Serious: No
  Sender: FDA-Public Use
  Company Number: US-009507513-1402USA013593

PATIENT
  Sex: Female

DRUGS (2)
  1. DULERA [Suspect]
     Indication: ASTHMA
     Route: 055
  2. NEXIUM [Concomitant]
     Indication: ASTHMA

REACTIONS (2)
  - Tremor [Recovered/Resolved]
  - Insomnia [Recovering/Resolving]
